FAERS Safety Report 7276287-7 (Version None)
Quarter: 2011Q1

REPORT INFORMATION
  Report Type: 
  Country: None (occurrence: None)
  Receive Date: 20110204
  Receipt Date: 20110131
  Transmission Date: 20110831
  Serious: Yes (Other)
  Sender: FDA-Public Use
  Company Number: JP-SANOFI-AVENTIS-2011SA006491

PATIENT
  Sex: Female
  Weight: 50 kg

DRUGS (8)
  1. APIDRA [Suspect]
     Dosage: 6-6-6
     Route: 058
     Dates: start: 20100306, end: 20100318
  2. MITIGLINIDE [Concomitant]
     Indication: DIABETES MELLITUS
     Route: 048
     Dates: start: 20091117, end: 20100204
  3. APIDRA [Suspect]
     Indication: DIABETES MELLITUS
     Dosage: 4-4-4
     Route: 058
     Dates: start: 20100204, end: 20100305
  4. APIDRA [Suspect]
     Dosage: 6-4-4
     Route: 058
     Dates: start: 20100319, end: 20100328
  5. LANTUS [Concomitant]
     Indication: DIABETES MELLITUS
     Dosage: AT BETTIME
     Route: 058
     Dates: start: 20100204, end: 20100328
  6. CRESTOR [Concomitant]
     Route: 048
  7. NORVASC [Concomitant]
     Route: 048
  8. ACTOS [Concomitant]
     Indication: DIABETES MELLITUS
     Route: 048
     Dates: start: 20091117, end: 20100204

REACTIONS (1)
  - PANCREATIC CARCINOMA [None]
